FAERS Safety Report 23214059 (Version 1)
Quarter: 2023Q4

REPORT INFORMATION
  Report Type: Spontaneous
  Country: US (occurrence: US)
  Receive Date: 20231121
  Receipt Date: 20231121
  Transmission Date: 20240110
  Serious: No
  Sender: FDA-Public Use
  Company Number: US-BAUSCH-BL-2023-017165

PATIENT
  Sex: Male

DRUGS (3)
  1. APLENZIN [Suspect]
     Active Substance: BUPROPION HYDROBROMIDE
     Indication: Product used for unknown indication
     Route: 048
  2. APLENZIN [Suspect]
     Active Substance: BUPROPION HYDROBROMIDE
     Dosage: TITRATED FROM 174 TO 348 MG
     Route: 048
  3. APLENZIN [Suspect]
     Active Substance: BUPROPION HYDROBROMIDE
     Dosage: TITRATED BACK DOWN FROM 348 TO 174 MG
     Route: 048

REACTIONS (2)
  - Feeling jittery [Unknown]
  - Constipation [Unknown]
